FAERS Safety Report 5832420-2 (Version None)
Quarter: 2008Q3

REPORT INFORMATION
  Report Type: 
  Country: None (occurrence: None)
  Receive Date: 20080730
  Receipt Date: 20080714
  Transmission Date: 20090109
  Serious: Yes (Hospitalization, Disabling)
  Sender: FDA-Public Use
  Company Number: GXKR2008IR06934

PATIENT
  Age: 26 Year
  Sex: Female

DRUGS (3)
  1. DIAZEPAM [Suspect]
     Indication: ANXIETY
     Dosage: 10 MG, ONCE/SINGLE, INTRA-ARTERIAL
     Route: 013
  2. DIAZEPAM [Suspect]
     Indication: HEADACHE
     Dosage: 10 MG, ONCE/SINGLE, INTRA-ARTERIAL
     Route: 013
  3. ERGOTAMINE (ERGOTAMINE) [Concomitant]

REACTIONS (10)
  - ARM AMPUTATION [None]
  - GANGRENE [None]
  - INCORRECT ROUTE OF DRUG ADMINISTRATION [None]
  - INJECTION SITE PAIN [None]
  - INJECTION SITE SWELLING [None]
  - PALLOR [None]
  - PARAESTHESIA [None]
  - PULSE ABSENT [None]
  - SKIN DISCOLOURATION [None]
  - THROMBOSIS [None]
